FAERS Safety Report 8689175 (Version 2)
Quarter: 2013Q1

REPORT INFORMATION
  Report Type: Spontaneous
  Country: AT (occurrence: AT)
  Receive Date: 20120727
  Receipt Date: 20130325
  Transmission Date: 20140127
  Serious: Yes (Hospitalization, Other)
  Sender: FDA-Public Use
  Company Number: PHHY2012AT063653

PATIENT
  Age: 85 Year
  Sex: Male

DRUGS (13)
  1. LOPERAMIDE [Suspect]
     Indication: DIARRHOEA
     Dosage: 2 MG, BID
  2. DABIGATRAN ETEXILATE [Interacting]
     Indication: PROPHYLAXIS
     Dosage: 110 MG, BID
     Dates: start: 201111
  3. LEUPRORELIN [Concomitant]
     Indication: ANTIANDROGEN THERAPY
  4. SPIRONOLACTONE [Concomitant]
     Dosage: 25 MG, DAILY
  5. XIPAMIDE [Concomitant]
     Dosage: 40 MG, ON THREE DAYS PER WEEK
  6. FLUVASTATIN [Concomitant]
     Dosage: 40 MG, DAILY
  7. PANTOPRAZOLE [Concomitant]
     Dosage: 40 MG, DAILY
  8. ESCITALOPRAM [Concomitant]
     Dosage: 10 MG, DAILY
  9. MAGNESIUM [Concomitant]
     Dosage: 40 MG, DAILY
  10. ENALAPRIL [Concomitant]
     Dosage: 2.5 MG, DAILY
  11. THEOPHYLLINE [Concomitant]
     Dosage: 200 MG, BID
  12. BUDESONIDE [Concomitant]
     Dosage: 160 UG
  13. FORMOTEROL [Concomitant]
     Dosage: 4.5 UG

REACTIONS (3)
  - Haematuria [Recovered/Resolved]
  - Urinary retention [Recovered/Resolved]
  - Thrombin time prolonged [Unknown]
